FAERS Safety Report 18312433 (Version 2)
Quarter: 2021Q1

REPORT INFORMATION
  Report Type: Other
  Country: AR (occurrence: AR)
  Receive Date: 20200925
  Receipt Date: 20210129
  Transmission Date: 20210419
  Serious: Yes (Other)
  Sender: FDA-Public Use
  Company Number: AR-ROCHE-2684968

PATIENT
  Age: 41 Year
  Sex: Male

DRUGS (4)
  1. SPIRIVA [Concomitant]
     Active Substance: TIOTROPIUM BROMIDE MONOHYDRATE
     Indication: PRODUCT USED FOR UNKNOWN INDICATION
     Route: 065
  2. MONTELUKAST [Concomitant]
     Active Substance: MONTELUKAST SODIUM
     Indication: PRODUCT USED FOR UNKNOWN INDICATION
     Route: 065
  3. FREVIA [Concomitant]
     Active Substance: BUDESONIDE\FORMOTEROL
     Indication: PRODUCT USED FOR UNKNOWN INDICATION
     Route: 065
  4. XOLAIR [Suspect]
     Active Substance: OMALIZUMAB
     Indication: ASTHMA
     Route: 058
     Dates: start: 20200427

REACTIONS (15)
  - Pyrexia [Unknown]
  - Malaise [Recovering/Resolving]
  - Oropharyngeal pain [Unknown]
  - Abdominal discomfort [Unknown]
  - Influenza [Unknown]
  - Lung disorder [Not Recovered/Not Resolved]
  - Feeling abnormal [Recovering/Resolving]
  - Back pain [Unknown]
  - Pulmonary pain [Unknown]
  - Dyspnoea [Unknown]
  - Nasal congestion [Unknown]
  - Emphysema [Unknown]
  - Bronchiectasis [Unknown]
  - Agitation [Unknown]
  - Pain in extremity [Unknown]

NARRATIVE: CASE EVENT DATE: 20200815
